FAERS Safety Report 22383081 (Version 1)
Quarter: 2023Q2

REPORT INFORMATION
  Report Type: Spontaneous
  Country: CN (occurrence: CN)
  Receive Date: 20230530
  Receipt Date: 20230530
  Transmission Date: 20230722
  Serious: Yes (Life-Threatening, Other)
  Sender: FDA-Public Use
  Company Number: CN-PFIZER INC-PV202300093915

PATIENT
  Age: 59 Year
  Sex: Female

DRUGS (3)
  1. CYTARABINE [Suspect]
     Active Substance: CYTARABINE
     Indication: Myelosuppression
     Dosage: 1.5 G, 1X/DAY
     Route: 041
     Dates: start: 20230412, end: 20230418
  2. DECITABINE [Suspect]
     Active Substance: DECITABINE
     Indication: Myelosuppression
     Dosage: 20 MG, 1X/DAY
     Route: 041
     Dates: start: 20230412, end: 20230416
  3. IDARUBICIN HYDROCHLORIDE [Suspect]
     Active Substance: IDARUBICIN HYDROCHLORIDE
     Indication: Myelosuppression
     Dosage: 15 MG, 1X/DAY
     Route: 041
     Dates: start: 20230412, end: 20230414

REACTIONS (2)
  - Myelosuppression [Recovering/Resolving]
  - Pyrexia [Recovering/Resolving]

NARRATIVE: CASE EVENT DATE: 20230505
